FAERS Safety Report 16228780 (Version 1)
Quarter: 2019Q2

REPORT INFORMATION
  Report Type: Spontaneous
  Country: US (occurrence: US)
  Receive Date: 20190319
  Receipt Date: 20190319
  Transmission Date: 20190711
  Serious: Yes (Death)
  Sender: FDA-Public Use
  Company Number: None

PATIENT
  Age: 78 Year
  Sex: Male
  Weight: 99.5 kg

DRUGS (15)
  1. FRESENIUS 2008 T HEMODIALYSIS MACHINE [Concomitant]
  2. COMBISET TRUE FLOW HEMODIALYSIS TUBING [Concomitant]
  3. BICARBONATE [Concomitant]
     Active Substance: SODIUM BICARBONATE
  4. FRESENIUS 1000 ML NORMAL SALINE; [Concomitant]
  5. 180 NRE OPTIFLUX DIALYZER [Concomitant]
  6. CALCIUM [Concomitant]
     Active Substance: CALCIUM
  7. MAGNESIUM [Concomitant]
     Active Substance: MAGNESIUM
  8. NATURALYTE 4000 RXL2 [Concomitant]
  9. TUNNELED IJ CVC [Concomitant]
  10. VANCOMYCIN HYDROCHLORIDE 500MG X 2 [Suspect]
     Active Substance: VANCOMYCIN HYDROCHLORIDE
     Indication: EVIDENCE BASED TREATMENT
     Dosage: ?          OTHER ROUTE:INFUSION?
     Dates: start: 20190124
  11. VANCOMYCIN HYDROCHLORIDE 500MG X 2 [Suspect]
     Active Substance: VANCOMYCIN HYDROCHLORIDE
     Indication: PYREXIA
     Dosage: ?          OTHER ROUTE:INFUSION?
     Dates: start: 20190124
  12. BBRAUN VISTA INFUSION PUMP [Concomitant]
  13. GRANUFLO ACID 2.OK [Concomitant]
  14. DEXTROSE. [Concomitant]
     Active Substance: DEXTROSE
  15. SODIUM CHLORIDE. [Concomitant]
     Active Substance: SODIUM CHLORIDE

REACTIONS (1)
  - Unresponsive to stimuli [None]

NARRATIVE: CASE EVENT DATE: 20190124
